FAERS Safety Report 22317480 (Version 1)
Quarter: 2023Q2

REPORT INFORMATION
  Report Type: Spontaneous
  Country: US (occurrence: US)
  Receive Date: 20230515
  Receipt Date: 20230515
  Transmission Date: 20230722
  Serious: No
  Sender: FDA-Public Use
  Company Number: US-TAKEDA-2023TUS047551

PATIENT
  Sex: Male
  Weight: 86 kg

DRUGS (1)
  1. CUVITRU [Suspect]
     Active Substance: HUMAN IMMUNOGLOBULIN G
     Indication: Immunodeficiency common variable
     Dosage: 18 MILLIGRAM, 1/WEEK
     Route: 065

REACTIONS (4)
  - Gait inability [Unknown]
  - Condition aggravated [Unknown]
  - Drug effect less than expected [Unknown]
  - Product storage error [Unknown]
